FAERS Safety Report 6975579-6 (Version None)
Quarter: 2010Q3

REPORT INFORMATION
  Report Type: 
  Country: None (occurrence: None)
  Receive Date: 20100910
  Receipt Date: 20090317
  Transmission Date: 20110219
  Serious: No
  Sender: FDA-Public Use
  Company Number: US-WYE-H08640509

PATIENT
  Age: 24 Year
  Sex: Male
  Weight: 61.29 kg

DRUGS (2)
  1. ADVIL PM [Suspect]
     Indication: PAIN
     Dosage: 2 LIQUI-GELS EVERY OTHER DAY
     Route: 048
     Dates: start: 20090301, end: 20090315
  2. ADVIL PM [Suspect]
     Indication: INSOMNIA

REACTIONS (1)
  - DRUG SCREEN FALSE POSITIVE [None]
